FAERS Safety Report 14692630 (Version 1)
Quarter: 2018Q1

REPORT INFORMATION
  Report Type: Spontaneous
  Country: GB (occurrence: GB)
  Receive Date: 20180329
  Receipt Date: 20180329
  Transmission Date: 20180509
  Serious: Yes (Hospitalization, Other)
  Sender: FDA-Public Use
  Company Number: GB-AXELLIA-001498

PATIENT
  Age: 11 Month
  Sex: Female

DRUGS (7)
  1. RANITIDINE. [Concomitant]
     Active Substance: RANITIDINE
  2. DIGOXIN. [Concomitant]
     Active Substance: DIGOXIN
  3. FUROSEMIDE. [Concomitant]
     Active Substance: FUROSEMIDE
  4. ACETYLSALICYLIC ACID [Concomitant]
     Active Substance: ASPIRIN
  5. TEICOPLANIN [Concomitant]
     Active Substance: TEICOPLANIN
  6. LISINOPRIL. [Concomitant]
     Active Substance: LISINOPRIL
  7. VANCOMYCIN [Suspect]
     Active Substance: VANCOMYCIN
     Indication: PRODUCT USED FOR UNKNOWN INDICATION
     Dosage: 15MG LINE LOCK
     Route: 042
     Dates: start: 20180103, end: 20180104

REACTIONS (2)
  - Skin discolouration [Recovered/Resolved]
  - Oxygen saturation decreased [Recovered/Resolved]

NARRATIVE: CASE EVENT DATE: 20180104
